FAERS Safety Report 8614065-4 (Version None)
Quarter: 2012Q3

REPORT INFORMATION
  Report Type: 
  Country: None (occurrence: None)
  Receive Date: 20120823
  Receipt Date: 20120810
  Transmission Date: 20120928
  Serious: Yes (Hospitalization, Disabling, Other)
  Sender: FDA-Public Use
  Company Number: US-009507513-1203USA03308

PATIENT

DRUGS (5)
  1. FOSAMAX PLUS D [Suspect]
     Indication: OSTEOPENIA
  2. FOSAMAX [Suspect]
     Indication: OSTEOPENIA
     Dosage: 70 MG, QW
     Route: 048
     Dates: start: 20011012, end: 20011207
  3. FOSAMAX [Suspect]
     Indication: OSTEOPOROSIS
     Dosage: 10 MG, QD
     Route: 048
     Dates: start: 19970101, end: 20070101
  4. FOSAMAX PLUS D [Suspect]
     Indication: OSTEOPOROSIS
     Route: 048
  5. CALCIUM (UNSPECIFIED) [Concomitant]
     Dosage: 600 MG, BID
     Route: 048

REACTIONS (77)
  - BONE DENSITY DECREASED [None]
  - OSTEOARTHRITIS [None]
  - HYPOACUSIS [None]
  - INFUSION SITE EXTRAVASATION [None]
  - DYSPEPSIA [None]
  - WOUND HAEMATOMA [None]
  - GRAVITATIONAL OEDEMA [None]
  - INFECTION [None]
  - ASTHMA [None]
  - CYSTITIS [None]
  - ANXIETY [None]
  - DEEP VEIN THROMBOSIS [None]
  - BACK PAIN [None]
  - MUSCULAR WEAKNESS [None]
  - EXOSTOSIS [None]
  - ADVERSE DRUG REACTION [None]
  - BUNDLE BRANCH BLOCK RIGHT [None]
  - ECZEMA [None]
  - AGITATION [None]
  - PAIN IN JAW [None]
  - SQUAMOUS CELL CARCINOMA [None]
  - NOCTURIA [None]
  - DEVICE FAILURE [None]
  - GAIT DISTURBANCE [None]
  - DIABETES MELLITUS [None]
  - LIMB ASYMMETRY [None]
  - DRY SKIN [None]
  - BRONCHITIS [None]
  - ARTHRALGIA [None]
  - OSTEOPOROSIS [None]
  - MULTIPLE FRACTURES [None]
  - CLOSTRIDIAL INFECTION [None]
  - ANAEMIA POSTOPERATIVE [None]
  - SKIN DISORDER [None]
  - DERMATITIS [None]
  - STRESS URINARY INCONTINENCE [None]
  - GASTRITIS [None]
  - PAIN IN EXTREMITY [None]
  - OEDEMA PERIPHERAL [None]
  - FEMUR FRACTURE [None]
  - CELLULITIS [None]
  - DYSPNOEA EXERTIONAL [None]
  - NEOPLASM MALIGNANT [None]
  - WEIGHT INCREASED [None]
  - NERVOUSNESS [None]
  - ELECTROCARDIOGRAM ABNORMAL [None]
  - WOUND DEHISCENCE [None]
  - SCOLIOSIS [None]
  - MUSCULOSKELETAL DISCOMFORT [None]
  - FEMORAL NECK FRACTURE [None]
  - WOUND DRAINAGE [None]
  - WOUND INFECTION STAPHYLOCOCCAL [None]
  - LYMPHOEDEMA [None]
  - POST PROCEDURAL HAEMORRHAGE [None]
  - NEURODERMATITIS [None]
  - DEPRESSION [None]
  - FRACTURE MALUNION [None]
  - HIP FRACTURE [None]
  - HYPOTHYROIDISM [None]
  - TOOTH DISORDER [None]
  - CATARACT [None]
  - MICTURITION URGENCY [None]
  - SYNOVIAL DISORDER [None]
  - IRON DEFICIENCY ANAEMIA [None]
  - BREAST DISORDER [None]
  - BLOOD DISORDER [None]
  - OROPHARYNGEAL PAIN [None]
  - SPINAL OSTEOARTHRITIS [None]
  - VERTEBRAL FORAMINAL STENOSIS [None]
  - FOOT DEFORMITY [None]
  - FALL [None]
  - IMPAIRED HEALING [None]
  - ROTATOR CUFF SYNDROME [None]
  - CORONARY ARTERY DISEASE [None]
  - SKIN ULCER [None]
  - PAIN [None]
  - DIARRHOEA [None]
